FAERS Safety Report 16617437 (Version 5)
Quarter: 2025Q3

REPORT INFORMATION
  Report Type: Spontaneous
  Country: EU (occurrence: EU)
  Receive Date: 20190723
  Receipt Date: 20250812
  Transmission Date: 20251020
  Serious: Yes (Hospitalization, Other)
  Sender: MYLAN
  Company Number: EU-UCBSA-2019005189

PATIENT
  Age: 67 Year
  Sex: Female

DRUGS (48)
  1. LEVETIRACETAM [Suspect]
     Active Substance: LEVETIRACETAM
     Indication: Status epilepticus
     Route: 065
  2. LEVETIRACETAM [Suspect]
     Active Substance: LEVETIRACETAM
     Indication: Seizure prophylaxis
  3. LEVETIRACETAM [Suspect]
     Active Substance: LEVETIRACETAM
  4. LEVETIRACETAM [Suspect]
     Active Substance: LEVETIRACETAM
     Route: 065
  5. LEVETIRACETAM [Suspect]
     Active Substance: LEVETIRACETAM
  6. LEVETIRACETAM [Suspect]
     Active Substance: LEVETIRACETAM
  7. LEVETIRACETAM [Suspect]
     Active Substance: LEVETIRACETAM
     Route: 065
  8. LEVETIRACETAM [Suspect]
     Active Substance: LEVETIRACETAM
     Route: 065
  9. LEVETIRACETAM [Suspect]
     Active Substance: LEVETIRACETAM
     Dosage: 500 MILLIGRAM, BID (1000 MILLIGRAM, QD)
     Route: 065
  10. LEVETIRACETAM [Suspect]
     Active Substance: LEVETIRACETAM
     Dosage: 500 MILLIGRAM, BID (1000 MILLIGRAM, QD)
  11. LEVETIRACETAM [Suspect]
     Active Substance: LEVETIRACETAM
     Dosage: 500 MILLIGRAM, BID (1000 MILLIGRAM, QD)
  12. LEVETIRACETAM [Suspect]
     Active Substance: LEVETIRACETAM
     Dosage: 500 MILLIGRAM, BID (1000 MILLIGRAM, QD)
     Route: 065
  13. LEVETIRACETAM [Suspect]
     Active Substance: LEVETIRACETAM
     Dosage: 500 MILLIGRAM, BID (500 MG,QD)
  14. LEVETIRACETAM [Suspect]
     Active Substance: LEVETIRACETAM
     Dosage: 500 MILLIGRAM, BID (500 MG,QD)
  15. LEVETIRACETAM [Suspect]
     Active Substance: LEVETIRACETAM
     Dosage: 500 MILLIGRAM, BID (500 MG,QD)
     Route: 065
  16. LEVETIRACETAM [Suspect]
     Active Substance: LEVETIRACETAM
     Dosage: 500 MILLIGRAM, BID (500 MG,QD)
     Route: 065
  17. LEVETIRACETAM [Suspect]
     Active Substance: LEVETIRACETAM
     Dosage: 500 MILLIGRAM, QD (500 MG, 2X/DAY (BID))
  18. LEVETIRACETAM [Suspect]
     Active Substance: LEVETIRACETAM
     Dosage: 500 MILLIGRAM, QD (500 MG, 2X/DAY (BID))
  19. LEVETIRACETAM [Suspect]
     Active Substance: LEVETIRACETAM
     Dosage: 500 MILLIGRAM, QD (500 MG, 2X/DAY (BID))
     Route: 065
  20. LEVETIRACETAM [Suspect]
     Active Substance: LEVETIRACETAM
     Dosage: 500 MILLIGRAM, QD (500 MG, 2X/DAY (BID))
     Route: 065
  21. LEVETIRACETAM [Suspect]
     Active Substance: LEVETIRACETAM
     Dosage: 500 MILLIGRAM, QD (500 MG, 2X/DAY (BID))
  22. LEVETIRACETAM [Suspect]
     Active Substance: LEVETIRACETAM
     Dosage: 500 MILLIGRAM, QD (500 MG, 2X/DAY (BID))
     Route: 065
  23. LEVETIRACETAM [Suspect]
     Active Substance: LEVETIRACETAM
     Dosage: 500 MILLIGRAM, QD (500 MG, 2X/DAY (BID))
  24. LEVETIRACETAM [Suspect]
     Active Substance: LEVETIRACETAM
     Dosage: 500 MILLIGRAM, QD (500 MG, 2X/DAY (BID))
     Route: 065
  25. PHENYTOIN SODIUM [Suspect]
     Active Substance: PHENYTOIN SODIUM
     Indication: Status epilepticus
  26. PHENYTOIN SODIUM [Suspect]
     Active Substance: PHENYTOIN SODIUM
     Route: 065
  27. PHENYTOIN SODIUM [Suspect]
     Active Substance: PHENYTOIN SODIUM
     Route: 065
  28. PHENYTOIN SODIUM [Suspect]
     Active Substance: PHENYTOIN SODIUM
  29. VALPROATE SODIUM [Suspect]
     Active Substance: VALPROATE SODIUM
     Indication: Status epilepticus
  30. VALPROATE SODIUM [Suspect]
     Active Substance: VALPROATE SODIUM
     Route: 065
  31. VALPROATE SODIUM [Suspect]
     Active Substance: VALPROATE SODIUM
     Route: 065
  32. VALPROATE SODIUM [Suspect]
     Active Substance: VALPROATE SODIUM
  33. OXCARBAZEPINE [Suspect]
     Active Substance: OXCARBAZEPINE
     Indication: Status epilepticus
  34. OXCARBAZEPINE [Suspect]
     Active Substance: OXCARBAZEPINE
     Route: 065
  35. OXCARBAZEPINE [Suspect]
     Active Substance: OXCARBAZEPINE
     Route: 065
  36. OXCARBAZEPINE [Suspect]
     Active Substance: OXCARBAZEPINE
  37. PROPOFOL [Concomitant]
     Active Substance: PROPOFOL
     Indication: Sedation
  38. PROPOFOL [Concomitant]
     Active Substance: PROPOFOL
     Route: 065
  39. PROPOFOL [Concomitant]
     Active Substance: PROPOFOL
     Route: 065
  40. PROPOFOL [Concomitant]
     Active Substance: PROPOFOL
  41. RAMIPRIL [Concomitant]
     Active Substance: RAMIPRIL
     Indication: Seizure prophylaxis
  42. RAMIPRIL [Concomitant]
     Active Substance: RAMIPRIL
     Route: 065
  43. RAMIPRIL [Concomitant]
     Active Substance: RAMIPRIL
     Route: 065
  44. RAMIPRIL [Concomitant]
     Active Substance: RAMIPRIL
  45. BISOPROLOL [Concomitant]
     Active Substance: BISOPROLOL
     Indication: Seizure prophylaxis
  46. BISOPROLOL [Concomitant]
     Active Substance: BISOPROLOL
     Route: 065
  47. BISOPROLOL [Concomitant]
     Active Substance: BISOPROLOL
     Route: 065
  48. BISOPROLOL [Concomitant]
     Active Substance: BISOPROLOL

REACTIONS (5)
  - Epilepsy [Recovered/Resolved]
  - Hypokalaemia [Unknown]
  - Hypomagnesaemia [Unknown]
  - Drug ineffective for unapproved indication [Recovered/Resolved]
  - Off label use [Unknown]
